FAERS Safety Report 9552722 (Version 2)
Quarter: 2013Q3

REPORT INFORMATION
  Report Type: Spontaneous
  Country: US (occurrence: US)
  Receive Date: 20130925
  Receipt Date: 20130925
  Transmission Date: 20140515
  Serious: Yes (Hospitalization)
  Sender: FDA-Public Use
  Company Number: US-NAPPMUNDI-USA-2012-0095918

PATIENT
  Sex: Male

DRUGS (6)
  1. MORPHINE SULFATE (SIMILAR TO NDA 19-516) [Suspect]
     Indication: PAIN
  2. CARBIDOPA AND LEVODOPA [Concomitant]
     Indication: PRODUCT USED FOR UNKNOWN INDICATION
     Dosage: TWO, 25 MG, FOUR TIMES DAILY
  3. COMTAN [Concomitant]
     Indication: PRODUCT USED FOR UNKNOWN INDICATION
  4. JANUVIA [Concomitant]
     Indication: TYPE 2 DIABETES MELLITUS
  5. LODOSYN [Concomitant]
     Indication: PRODUCT USED FOR UNKNOWN INDICATION
     Dosage: 25 MG, DAILY
  6. LITHIUM [Concomitant]
     Indication: BIPOLAR DISORDER
     Dosage: UNK
     Dates: start: 1984

REACTIONS (3)
  - Hallucination [Unknown]
  - Confusional state [Unknown]
  - Agitation [Unknown]
